FAERS Safety Report 22148463 (Version 1)
Quarter: 2023Q1

REPORT INFORMATION
  Report Type: Spontaneous
  Country: US (occurrence: US)
  Receive Date: 20230328
  Receipt Date: 20230328
  Transmission Date: 20230418
  Serious: No
  Sender: FDA-Public Use
  Company Number: US-SA-SAC20230323001455

PATIENT
  Age: 43 Year
  Sex: Female

DRUGS (1)
  1. DUPIXENT [Suspect]
     Active Substance: DUPILUMAB
     Dosage: 600 MG OTHER
     Route: 058
     Dates: start: 20230315, end: 20230315

REACTIONS (2)
  - Fungal infection [Unknown]
  - Rash macular [Unknown]

NARRATIVE: CASE EVENT DATE: 20230316
